FAERS Safety Report 8988848 (Version 1)
Quarter: 2012Q4

REPORT INFORMATION
  Report Type: Spontaneous
  Country: US (occurrence: None)
  Receive Date: 20121224
  Receipt Date: 20121224
  Transmission Date: 20130627
  Serious: No
  Sender: FDA-Public Use
  Company Number: None

PATIENT
  Age: 35 Year
  Sex: Male
  Weight: 51.71 kg

DRUGS (7)
  1. KEPPRA 750MG (GENERIC) UNKNOWN [Suspect]
     Indication: EPILEPSY
     Dosage: 750 mg BID po
     Route: 048
  2. DILANTIN [Concomitant]
  3. VIMPAT [Concomitant]
  4. CRESTOR [Concomitant]
  5. METOPROLOL [Concomitant]
  6. ASPIRIN [Concomitant]
  7. LACTULOSE [Concomitant]

REACTIONS (2)
  - Hallucination, visual [None]
  - Hallucination, auditory [None]
